FAERS Safety Report 19752559 (Version 3)
Quarter: 2021Q4

REPORT INFORMATION
  Report Type: Spontaneous
  Country: AU (occurrence: AU)
  Receive Date: 20210826
  Receipt Date: 20211007
  Transmission Date: 20220303
  Serious: Yes (Death)
  Sender: FDA-Public Use
  Company Number: AU-CELGENE-AUS-20210807916

PATIENT
  Sex: Female

DRUGS (1)
  1. REVLIMID [Suspect]
     Active Substance: LENALIDOMIDE
     Indication: Myelodysplastic syndrome
     Dosage: 5 MILLIGRAM
     Route: 048
     Dates: start: 20201217

REACTIONS (1)
  - Death [Fatal]
